FAERS Safety Report 16494083 (Version 2)
Quarter: 2019Q3

REPORT INFORMATION
  Report Type: Spontaneous
  Country: US (occurrence: US)
  Receive Date: 20190628
  Receipt Date: 20190709
  Transmission Date: 20191004
  Serious: No
  Sender: FDA-Public Use
  Company Number: US-TORRENT-00008915

PATIENT
  Age: 75 Year
  Sex: Male
  Weight: 77 kg

DRUGS (4)
  1. TOLTERODINE TARTRATE. [Suspect]
     Active Substance: TOLTERODINE TARTRATE
     Indication: CROHN^S DISEASE
     Dosage: SINCE 20 YEARS
     Dates: start: 20190318, end: 20190515
  2. OMEPRAZOLE. [Concomitant]
     Active Substance: OMEPRAZOLE
     Indication: PRODUCT USED FOR UNKNOWN INDICATION
     Dosage: UNKNOWN
  3. BALSALAZIDE DISODIUM. [Concomitant]
     Active Substance: BALSALAZIDE DISODIUM
     Indication: PRODUCT USED FOR UNKNOWN INDICATION
     Dosage: UNKNOWN
  4. DIPHENOXALATE [Concomitant]
     Indication: GASTROINTESTINAL MOTILITY DISORDER
     Dosage: UNKNOWN

REACTIONS (5)
  - Eye pruritus [Recovering/Resolving]
  - Impaired healing [Recovering/Resolving]
  - Dry skin [Recovering/Resolving]
  - Off label use [Unknown]
  - Lacrimation increased [Recovering/Resolving]

NARRATIVE: CASE EVENT DATE: 20190318
